FAERS Safety Report 10348817 (Version 2)
Quarter: 2014Q3

REPORT INFORMATION
  Report Type: Report from Study
  Country: US (occurrence: US)
  Receive Date: 20140729
  Receipt Date: 20140821
  Transmission Date: 20150326
  Serious: Yes (Hospitalization)
  Sender: FDA-Public Use
  Company Number: US-ALEXION-A201402900

PATIENT

DRUGS (2)
  1. ANTIBIOTIC                         /00011701/ [Suspect]
     Active Substance: UNSPECIFIED INGREDIENT
     Indication: EAR INFECTION
     Dosage: UNK
     Route: 065
  2. SOLIRIS [Suspect]
     Active Substance: ECULIZUMAB
     Indication: HAEMOLYTIC URAEMIC SYNDROME
     Dosage: 600 MG, QW
     Route: 042
     Dates: start: 20140721

REACTIONS (3)
  - Ear infection [Unknown]
  - Blood creatinine increased [Not Recovered/Not Resolved]
  - Abdominal discomfort [Unknown]

NARRATIVE: CASE EVENT DATE: 20140721
